FAERS Safety Report 18473907 (Version 1)
Quarter: 2020Q4

REPORT INFORMATION
  Report Type: Spontaneous
  Country: GB (occurrence: GB)
  Receive Date: 20201106
  Receipt Date: 20201106
  Transmission Date: 20210114
  Serious: Yes (Disabling, Congenital Anomaly)
  Sender: FDA-Public Use
  Company Number: GB-EMD SERONO-E2B_90081043

PATIENT
  Sex: Male

DRUGS (2)
  1. REBIF [Suspect]
     Active Substance: INTERFERON BETA-1A
     Indication: MULTIPLE SCLEROSIS
  2. FOLIC ACID. [Concomitant]
     Active Substance: FOLIC ACID
     Indication: VITAMIN SUPPLEMENTATION
     Route: 064

REACTIONS (4)
  - Neurodevelopmental disorder [Not Recovered/Not Resolved]
  - Chromosomal deletion [Not Recovered/Not Resolved]
  - Fine motor delay [Not Recovered/Not Resolved]
  - Exposure via father [Unknown]
